FAERS Safety Report 7392517-5 (Version None)
Quarter: 2011Q1

REPORT INFORMATION
  Report Type: 
  Country: None (occurrence: None)
  Receive Date: 20110330
  Receipt Date: 20110330
  Transmission Date: 20110831
  Serious: Yes (Life-Threatening, Hospitalization)
  Sender: FDA-Public Use
  Company Number: None

PATIENT
  Age: 68 Year
  Sex: Male

DRUGS (1)
  1. DOCETAXEL [Suspect]
     Indication: PROSTATE CANCER METASTATIC
     Dosage: 150MG ONCE IV
     Route: 042
     Dates: start: 20110301, end: 20110301

REACTIONS (3)
  - SYNCOPE [None]
  - PULSE ABSENT [None]
  - CARDIO-RESPIRATORY ARREST [None]
